FAERS Safety Report 19745048 (Version 1)
Quarter: 2021Q3

REPORT INFORMATION
  Report Type: Spontaneous
  Country: US (occurrence: US)
  Receive Date: 20210825
  Receipt Date: 20210825
  Transmission Date: 20211014
  Serious: Yes (Other)
  Sender: FDA-Public Use
  Company Number: US-MICRO LABS LIMITED-ML2021-02112

PATIENT
  Age: 35 Year
  Sex: Female

DRUGS (1)
  1. BUPROPION HYDROCHLORIDE TABLETS USP, 75 MG [Suspect]
     Active Substance: BUPROPION HYDROCHLORIDE
     Indication: DEPRESSION

REACTIONS (1)
  - Subacute cutaneous lupus erythematosus [Recovered/Resolved]
